FAERS Safety Report 7641611-X (Version None)
Quarter: 2011Q3

REPORT INFORMATION
  Report Type: 
  Country: None (occurrence: None)
  Receive Date: 20110728
  Receipt Date: 20110708
  Transmission Date: 20111222
  Serious: Yes (Hospitalization)
  Sender: FDA-Public Use
  Company Number: US-GLAXOSMITHKLINE-A0700834A

PATIENT
  Age: 36 Year
  Sex: Male

DRUGS (1)
  1. AVANDIA [Suspect]
     Indication: TYPE 2 DIABETES MELLITUS
     Dosage: 8MG PER DAY
     Route: 048
     Dates: start: 20010101, end: 20070301

REACTIONS (6)
  - CARDIAC FAILURE CONGESTIVE [None]
  - FLUID RETENTION [None]
  - HEART INJURY [None]
  - ARRHYTHMIA [None]
  - FLUID OVERLOAD [None]
  - MYOCARDIAL INFARCTION [None]
